FAERS Safety Report 14519601 (Version 1)
Quarter: 2018Q1

REPORT INFORMATION
  Report Type: Spontaneous
  Country: US (occurrence: US)
  Receive Date: 20180210
  Receipt Date: 20180210
  Transmission Date: 20180509
  Serious: No
  Sender: FDA-Public Use
  Company Number: None

PATIENT
  Age: 49 Year
  Sex: Female
  Weight: 163.8 kg

DRUGS (20)
  1. GABAPENTIN. [Suspect]
     Active Substance: GABAPENTIN
     Indication: NEURALGIA
     Dosage: ?          QUANTITY:1 CAPSULE(S);?
     Route: 048
     Dates: start: 20180125, end: 20180130
  2. VITAMIN D3 [Concomitant]
     Active Substance: CHOLECALCIFEROL
  3. MELATONIN [Concomitant]
     Active Substance: MELATONIN
  4. OLOPATADINE HCI [Concomitant]
  5. FLUTICASONE PROPIONATE. [Concomitant]
     Active Substance: FLUTICASONE PROPIONATE
  6. METFORMIN [Concomitant]
     Active Substance: METFORMIN HYDROCHLORIDE
  7. OXYCODONE [Concomitant]
     Active Substance: OXYCODONE
  8. TOLTERODINE [Concomitant]
     Active Substance: TOLTERODINE
  9. ACCU-CHECK FAST CLIX LANCETS [Concomitant]
  10. ARMOUR THYROID [Concomitant]
     Active Substance: THYROID, PORCINE
  11. DULOXETINE. [Concomitant]
     Active Substance: DULOXETINE
  12. METOPROLOL. [Concomitant]
     Active Substance: METOPROLOL
  13. NAPROXEN. [Concomitant]
     Active Substance: NAPROXEN
  14. AZELASTINE. [Concomitant]
     Active Substance: AZELASTINE HYDROCHLORIDE
  15. ONDANSETRON [Concomitant]
     Active Substance: ONDANSETRON
  16. ESZOPICLONE. [Concomitant]
     Active Substance: ESZOPICLONE
  17. MIRTAZAPINE. [Concomitant]
     Active Substance: MIRTAZAPINE
  18. ALLOPURINOL. [Concomitant]
     Active Substance: ALLOPURINOL
  19. BENADRYL [Concomitant]
     Active Substance: DIPHENHYDRAMINE HYDROCHLORIDE
  20. FUROSEMIDE. [Concomitant]
     Active Substance: FUROSEMIDE

REACTIONS (4)
  - Contusion [None]
  - Eyelid oedema [None]
  - Photophobia [None]
  - Swelling face [None]

NARRATIVE: CASE EVENT DATE: 20180130
